FAERS Safety Report 5154212-2 (Version None)
Quarter: 2006Q4

REPORT INFORMATION
  Report Type: 
  Country: None (occurrence: None)
  Receive Date: 20061114
  Receipt Date: 20061027
  Transmission Date: 20070319
  Serious: Yes (Hospitalization)
  Sender: FDA-Public Use
  Company Number: 15097

PATIENT
  Age: 63 Year
  Sex: Male
  Weight: 76 kg

DRUGS (9)
  1. CARBOPLATIN [Suspect]
     Indication: CARCINOMA IN SITU
     Dates: start: 20060623, end: 20060623
  2. FLUOUROUACIL DAKOTA PHARMA [Suspect]
     Indication: CARCINOMA IN SITU
     Dates: start: 20060623, end: 20060623
  3. LEVOTHYROXINE SODIUM [Suspect]
     Dosage: 100 MICROGRAM QD PO
     Route: 048
  4. PREVISCAN [Suspect]
     Indication: MITRAL VALVE DISEASE
     Dosage: 15 MG QD PO
     Route: 048
     Dates: end: 20060706
  5. CLAMOXYL [Suspect]
     Dosage: 3 G QD PO
     Route: 048
     Dates: start: 20060702, end: 20060716
  6. TRIFLUCAN [Suspect]
     Dates: start: 20060702, end: 20060706
  7. CACIT [Concomitant]
  8. ZOCOR [Concomitant]
  9. TRIATEC [Concomitant]

REACTIONS (11)
  - CONDITION AGGRAVATED [None]
  - DRUG INTERACTION [None]
  - HAEMOGLOBIN DECREASED [None]
  - INFECTION [None]
  - INTERNATIONAL NORMALISED RATIO INCREASED [None]
  - ORAL SOFT TISSUE DISORDER [None]
  - PLATELET COUNT DECREASED [None]
  - PRODUCTIVE COUGH [None]
  - PROTHROMBIN TIME PROLONGED [None]
  - PYREXIA [None]
  - RENAL FAILURE CHRONIC [None]
